FAERS Safety Report 5330360-9 (Version None)
Quarter: 2007Q2

REPORT INFORMATION
  Report Type: 
  Country: None (occurrence: None)
  Receive Date: 20070521
  Receipt Date: 20070510
  Transmission Date: 20071010
  Serious: Yes (Other)
  Sender: FDA-Public Use
  Company Number: FR-PFIZER INC-2007011213

PATIENT
  Sex: Female
  Weight: 59 kg

DRUGS (2)
  1. LYRICA [Suspect]
     Indication: TRIGEMINAL NEURALGIA
     Route: 048
  2. BECLOMETHASONE DIPROPIONATE [Concomitant]
     Route: 055

REACTIONS (5)
  - ALTERED STATE OF CONSCIOUSNESS [None]
  - AMNESIA [None]
  - COGNITIVE DISORDER [None]
  - CONFUSIONAL STATE [None]
  - SPEECH DISORDER [None]
